FAERS Safety Report 12130076 (Version 1)
Quarter: 2016Q1

REPORT INFORMATION
  Report Type: Spontaneous
  Country: US (occurrence: US)
  Receive Date: 20160229
  Receipt Date: 20160229
  Transmission Date: 20160526
  Serious: No
  Sender: FDA-Public Use
  Company Number: US-ACORDA-ACO_23729_2010

PATIENT
  Age: 66 Year
  Sex: Female
  Weight: 77.55 kg

DRUGS (4)
  1. AMPYRA [Suspect]
     Active Substance: DALFAMPRIDINE
     Indication: MULTIPLE SCLEROSIS
  2. AMPYRA [Suspect]
     Active Substance: DALFAMPRIDINE
     Indication: GAIT DISTURBANCE
     Dosage: 10 MG, BID
     Route: 048
     Dates: start: 20100517, end: 201103
  3. REBIF [Concomitant]
     Active Substance: INTERFERON BETA-1A
     Dosage: 22 ?G, THREE TIMES WEEKLY
     Route: 058
     Dates: start: 20100528
  4. REBIF [Concomitant]
     Active Substance: INTERFERON BETA-1A
     Indication: MULTIPLE SCLEROSIS
     Dosage: 7 ?G, THREE TIMES WEEKLY
     Route: 058
     Dates: start: 20100502

REACTIONS (2)
  - Insomnia [Recovered/Resolved]
  - Vertigo [Not Recovered/Not Resolved]

NARRATIVE: CASE EVENT DATE: 201005
